FAERS Safety Report 11883210 (Version 1)
Quarter: 2015Q4

REPORT INFORMATION
  Report Type: Spontaneous
  Country: JP (occurrence: JP)
  Receive Date: 20151231
  Receipt Date: 20151231
  Transmission Date: 20160305
  Serious: Yes (Hospitalization)
  Sender: FDA-Public Use
  Company Number: JP-009507513-1512JPN005658

PATIENT

DRUGS (1)
  1. BELSOMRA [Suspect]
     Active Substance: SUVOREXANT
     Route: 048

REACTIONS (2)
  - Melaena [Unknown]
  - Adverse event [Unknown]

NARRATIVE: CASE EVENT DATE: 201511
